FAERS Safety Report 9554607 (Version 2)
Quarter: 2013Q3

REPORT INFORMATION
  Report Type: Spontaneous
  Country: US (occurrence: US)
  Receive Date: 20130925
  Receipt Date: 20130930
  Transmission Date: 20140515
  Serious: Yes (Hospitalization, Other)
  Sender: FDA-Public Use
  Company Number: US-009507513-1309USA009967

PATIENT
  Age: 68 Year
  Sex: Male

DRUGS (4)
  1. REBETOL [Suspect]
     Indication: HEPATITIS C
     Dosage: UNK
     Route: 048
     Dates: start: 20080104, end: 20080620
  2. REBETOL [Suspect]
     Dosage: UNK
     Dates: start: 20080103, end: 20080701
  3. PEGINTRON [Suspect]
     Indication: HEPATITIS C
     Dosage: UNK,
     Dates: start: 20080108, end: 20080620
  4. PEGINTRON [Suspect]
     Dosage: UNK, REDIPEN
     Dates: start: 20080103, end: 20080701

REACTIONS (11)
  - Hepatic pain [Unknown]
  - Hepatic cirrhosis [Unknown]
  - Swelling [Unknown]
  - Abdominal distension [Unknown]
  - Psoriasis [Unknown]
  - Alopecia [Unknown]
  - Oedema [Unknown]
  - Hepatic enzyme increased [Unknown]
  - Drug ineffective [Unknown]
  - Therapeutic response decreased [Unknown]
  - Drug ineffective [Unknown]
